FAERS Safety Report 21968445 (Version 2)
Quarter: 2023Q1

REPORT INFORMATION
  Report Type: Spontaneous
  Country: DE (occurrence: None)
  Receive Date: 20230208
  Receipt Date: 20230209
  Transmission Date: 20230418
  Serious: Yes (Life-Threatening, Hospitalization, Other)
  Sender: FDA-Public Use
  Company Number: 2023A029691

PATIENT
  Sex: Male

DRUGS (2)
  1. TICAGRELOR [Suspect]
     Active Substance: TICAGRELOR
     Dosage: UNKNOWN
     Route: 048
  2. ASPIRIN [Concomitant]
     Active Substance: ASPIRIN

REACTIONS (4)
  - Internal haemorrhage [Unknown]
  - Gastrointestinal haemorrhage [Unknown]
  - Myocardial infarction [Unknown]
  - Blood iron abnormal [Unknown]
